FAERS Safety Report 10423131 (Version 2)
Quarter: 2014Q4

REPORT INFORMATION
  Report Type: Spontaneous
  Country: US (occurrence: None)
  Receive Date: 20140722
  Receipt Date: 20141020
  Transmission Date: 20150528
  Serious: No
  Sender: FDA-Public Use
  Company Number: AEGR000411

PATIENT
  Age: 53 Year
  Sex: Female
  Weight: 124.7 kg

DRUGS (13)
  1. ASPIRIN (ACETYLSALICYLIC ACID) [Concomitant]
     Active Substance: ASPIRIN
  2. MIRALAX (MACROGOL) [Concomitant]
  3. NEXIUM (ESOMEPRAZOLE MAGNESIUM ) [Concomitant]
  4. VITAMIN B12 [Concomitant]
     Active Substance: CYANOCOBALAMIN
  5. SYNTHROID [Concomitant]
     Active Substance: LEVOTHYROXINE SODIUM
  6. VITAMIN D3 [Concomitant]
     Active Substance: CHOLECALCIFEROL
  7. JUXTAPID [Suspect]
     Active Substance: LOMITAPIDE MESYLATE
     Indication: TYPE IIA HYPERLIPIDAEMIA
     Route: 048
     Dates: start: 201403
  8. LOSARTAN (LOSARTAN POTASSIUM) [Concomitant]
  9. ALIVAN (LORAZEPAM) [Concomitant]
  10. LIVALO (PITAVASTATIN CALCIUM) [Concomitant]
  11. LAMICTAL [Concomitant]
     Active Substance: LAMOTRIGINE
  12. LOVASTATIN. [Concomitant]
     Active Substance: LOVASTATIN
  13. VITAMIN D (ERGOCALCIFEROL) [Concomitant]
     Active Substance: ERGOCALCIFEROL

REACTIONS (15)
  - High density lipoprotein decreased [None]
  - Flatulence [None]
  - Gastrointestinal disorder [None]
  - Weight decreased [None]
  - Increased appetite [None]
  - Chest pain [None]
  - Hunger [None]
  - Anxiety [None]
  - Gastrooesophageal reflux disease [None]
  - Ulcer [None]
  - Fatigue [None]
  - Lipids increased [None]
  - Presyncope [None]
  - Abdominal pain lower [None]
  - Abdominal pain [None]

NARRATIVE: CASE EVENT DATE: 20140423
